FAERS Safety Report 12725271 (Version 1)
Quarter: 2016Q3

REPORT INFORMATION
  Report Type: Report from Study
  Country: CA (occurrence: CA)
  Receive Date: 20160908
  Receipt Date: 20160908
  Transmission Date: 20161109
  Serious: Yes (Other)
  Sender: FDA-Public Use
  Company Number: CA-ABBVIE-16K-028-1716057-00

PATIENT
  Sex: Female

DRUGS (1)
  1. HUMIRA [Suspect]
     Active Substance: ADALIMUMAB
     Indication: CROHN^S DISEASE
     Route: 058
     Dates: start: 20150930

REACTIONS (6)
  - Gastrointestinal inflammation [Recovering/Resolving]
  - Impaired work ability [Not Recovered/Not Resolved]
  - Abdominal adhesions [Recovering/Resolving]
  - Emotional distress [Not Recovered/Not Resolved]
  - Intestinal obstruction [Recovering/Resolving]
  - Impaired quality of life [Not Recovered/Not Resolved]

NARRATIVE: CASE EVENT DATE: 2016
